FAERS Safety Report 23469247 (Version 1)
Quarter: 2024Q1

REPORT INFORMATION
  Report Type: Spontaneous
  Country: AU (occurrence: AU)
  Receive Date: 20240202
  Receipt Date: 20240202
  Transmission Date: 20240410
  Serious: Yes (Other)
  Sender: FDA-Public Use
  Company Number: AU-AstraZeneca-2024-122879

PATIENT

DRUGS (1)
  1. TOPROL XL [Suspect]
     Active Substance: METOPROLOL SUCCINATE
     Indication: Product used for unknown indication
     Dosage: UNK
     Route: 048

REACTIONS (7)
  - Dysarthria [Unknown]
  - Fall [Unknown]
  - Cough [Recovering/Resolving]
  - Fatigue [Unknown]
  - Malaise [Unknown]
  - Somnolence [Unknown]
  - Off label use [Unknown]
